FAERS Safety Report 4316410-7 (Version None)
Quarter: 2004Q1

REPORT INFORMATION
  Report Type: 
  Country: None (occurrence: None)
  Receive Date: 20040312
  Receipt Date: 20040305
  Transmission Date: 20041129
  Serious: Yes (Other)
  Sender: FDA-Public Use
  Company Number: PHRM2004FR01124

PATIENT
  Sex: Male

DRUGS (6)
  1. LAMISIL [Suspect]
     Indication: NAIL TINEA
     Dosage: 250 MG, ONCE/SINGLE
     Route: 048
     Dates: start: 20040302, end: 20040302
  2. ALDACTONE [Concomitant]
     Dosage: UNK, UNK
     Route: 048
  3. SINTROM [Concomitant]
     Dosage: UNK, UNK
     Route: 048
  4. TRIMETAZIDINE [Concomitant]
     Dosage: UNK, UNK
     Route: 048
  5. FENOFIBRATE [Concomitant]
     Dosage: UNK, UNK
     Route: 048
  6. NITROGLYCERIN [Concomitant]
     Dosage: UNK, UNK
     Route: 062

REACTIONS (2)
  - DYSGEUSIA [None]
  - EPILEPSY [None]
